FAERS Safety Report 6936867-2 (Version None)
Quarter: 2010Q3

REPORT INFORMATION
  Report Type: 
  Country: None (occurrence: None)
  Receive Date: 20100823
  Receipt Date: 20100809
  Transmission Date: 20110219
  Serious: No
  Sender: FDA-Public Use
  Company Number: US-B.I. PHARMACEUTICALS,INC./RIDGEFIELD-2010-BP-09045BP

PATIENT
  Age: 80 Year
  Sex: Female

DRUGS (4)
  1. SPIRIVA [Suspect]
  2. ADVAIR DISKUS 100/50 [Concomitant]
  3. FOSAMAX [Concomitant]
  4. PREDNISONE [Concomitant]

REACTIONS (3)
  - CONFUSIONAL STATE [None]
  - MENTAL IMPAIRMENT [None]
  - PSEUDOMONAS INFECTION [None]
